FAERS Safety Report 9551737 (Version 1)
Quarter: 2013Q3

REPORT INFORMATION
  Report Type: Spontaneous
  Country: US (occurrence: None)
  Receive Date: 20130724
  Receipt Date: 20130724
  Transmission Date: 20140515
  Serious: Yes (Hospitalization)
  Sender: FDA-Public Use
  Company Number: PHEH2012US010681

PATIENT
  Age: 55 Year
  Sex: Male
  Weight: 71.7 kg

DRUGS (8)
  1. GLEEVEC [Suspect]
     Indication: CHRONIC MYELOID LEUKAEMIA
     Route: 048
     Dates: start: 20120302
  2. OXYCODONE (OXYCODONE) [Concomitant]
  3. ALLOPURINOL [Concomitant]
  4. VITAMIN D (ERGOCALCIFEROL) [Concomitant]
  5. SLOW-MAG [Concomitant]
  6. CALCIUM (CALCIUM) [Concomitant]
  7. BACLOFEN (BACLOFEN) [Concomitant]
  8. ZOFRAN (ONDANSETRON HYDROCHLORIDE) [Concomitant]

REACTIONS (17)
  - Leukaemic infiltration [None]
  - Nausea [None]
  - Muscle spasms [None]
  - Back pain [None]
  - Pain in extremity [None]
  - Rash [None]
  - Fluid retention [None]
  - Dehydration [None]
  - Rash pruritic [None]
  - Diarrhoea [None]
  - Abdominal pain upper [None]
  - Dizziness [None]
  - Pollakiuria [None]
  - Myalgia [None]
  - Malignant neoplasm progression [None]
  - Arthralgia [None]
  - Arthritis [None]
